FAERS Safety Report 21956369 (Version 1)
Quarter: 2023Q1

REPORT INFORMATION
  Report Type: Other
  Country: US (occurrence: None)
  Receive Date: 20230206
  Receipt Date: 20230206
  Transmission Date: 20230417
  Serious: Yes (Life-Threatening, Hospitalization, Other)
  Sender: FDA-Public Use
  Company Number: US-ROCHE-3273414

PATIENT
  Age: 34 Year
  Sex: Male

DRUGS (2)
  1. EVRYSDI [Suspect]
     Active Substance: RISDIPLAM
     Indication: Spinal muscular atrophy
     Dosage: YES
     Route: 048
     Dates: start: 20201106
  2. SPINRAZA [Concomitant]
     Active Substance: NUSINERSEN
     Dates: end: 20200807

REACTIONS (8)
  - Multiple fractures [Recovering/Resolving]
  - Fall [Unknown]
  - Concussion [Recovering/Resolving]
  - Hypoglycaemic unconsciousness [Unknown]
  - Loss of consciousness [Unknown]
  - Hypoglycaemia [Unknown]
  - Bedridden [Unknown]
  - Pain [Unknown]

NARRATIVE: CASE EVENT DATE: 20221120
